FAERS Safety Report 24619922 (Version 1)
Quarter: 2024Q4

REPORT INFORMATION
  Report Type: Spontaneous
  Country: US (occurrence: US)
  Receive Date: 20241114
  Receipt Date: 20241114
  Transmission Date: 20250115
  Serious: No
  Sender: SANDOZ
  Company Number: US-SANDOZ-SDZ2024US095193

PATIENT

DRUGS (1)
  1. COSYNTROPIN [Suspect]
     Active Substance: COSYNTROPIN
     Indication: Product used for unknown indication
     Dosage: 250 UG
     Route: 065

REACTIONS (1)
  - Expired product administered [Unknown]
